FAERS Safety Report 6773950-9 (Version None)
Quarter: 2010Q2

REPORT INFORMATION
  Report Type: 
  Country: None (occurrence: None)
  Receive Date: 20100615
  Receipt Date: 20100615
  Transmission Date: 20101027
  Serious: Yes (Other)
  Sender: FDA-Public Use
  Company Number: None

PATIENT
  Age: 40 Year
  Sex: Female
  Weight: 96.6162 kg

DRUGS (1)
  1. VASERETIC [Suspect]
     Indication: HYPERTENSION
     Dosage: 10/12.5MG ONCE DAILY P.O.
     Route: 048
     Dates: start: 20100329, end: 20100519

REACTIONS (1)
  - COUGH [None]
